FAERS Safety Report 8651808 (Version 3)
Quarter: 2013Q1

REPORT INFORMATION
  Report Type: Spontaneous
  Country: US (occurrence: US)
  Receive Date: 20120706
  Receipt Date: 20130307
  Transmission Date: 20140127
  Serious: Yes (Hospitalization, Disabling)
  Sender: FDA-Public Use
  Company Number: US-BAYER-2012-065585

PATIENT
  Age: 49 Year
  Sex: Female
  Weight: 99.77 kg

DRUGS (5)
  1. BEYAZ [Suspect]
     Indication: CONTRACEPTION
     Dosage: UNK
     Dates: start: 20110407, end: 20111222
  2. BEYAZ [Suspect]
     Indication: HORMONE THERAPY
  3. LEVOTHYROXINE [Concomitant]
     Dosage: 50 ?G, QD
     Dates: start: 2009
  4. VITAMIN D [Concomitant]
     Dosage: 1000 UNIT
     Route: 048
  5. VITAMIN D [Concomitant]
     Dosage: 50000 UNIT, 2 TIMES A WEEK
     Route: 048

REACTIONS (6)
  - Deep vein thrombosis [None]
  - Injury [None]
  - Deformity [None]
  - Anxiety [None]
  - Anhedonia [None]
  - Pain in extremity [None]
